FAERS Safety Report 17009560 (Version 1)
Quarter: 2020Q3

REPORT INFORMATION
  Report Type: Spontaneous
  Country: US (occurrence: US)
  Receive Date: 20191108
  Receipt Date: 20191108
  Transmission Date: 20201104
  Serious: No
  Sender: FDA-Public Use
  Company Number: US-PFIZER INC-2019479344

PATIENT
  Sex: Female

DRUGS (1)
  1. TALAZOPARIB. [Suspect]
     Active Substance: TALAZOPARIB
     Indication: NEOADJUVANT THERAPY
     Dosage: UNK

REACTIONS (2)
  - Goitre [Unknown]
  - Thyroid pain [Unknown]
